FAERS Safety Report 4535453-1 (Version None)
Quarter: 2004Q4

REPORT INFORMATION
  Report Type: 
  Country: None (occurrence: None)
  Receive Date: 20041214
  Receipt Date: 20040920
  Transmission Date: 20050328
  Serious: No
  Sender: FDA-Public Use
  Company Number: USA040978705

PATIENT
  Age: 69 Year
  Sex: Male

DRUGS (4)
  1. CIALIS [Suspect]
     Indication: ERECTILE DYSFUNCTION
     Dosage: 20 MG AS NEEDED
     Dates: start: 20040918, end: 20040918
  2. FLORINEF [Concomitant]
  3. PRAVACHOL [Concomitant]
  4. VIOXX [Concomitant]

REACTIONS (2)
  - HAEMATURIA [None]
  - POLLAKIURIA [None]
